FAERS Safety Report 8112060-5 (Version None)
Quarter: 2012Q1

REPORT INFORMATION
  Report Type: 
  Country: None (occurrence: None)
  Receive Date: 20120203
  Receipt Date: 20120124
  Transmission Date: 20120608
  Serious: Yes (Hospitalization)
  Sender: FDA-Public Use
  Company Number: JP-PFIZER INC-2011313809

PATIENT
  Age: 92 Year
  Sex: Female

DRUGS (12)
  1. DOGMATYL [Concomitant]
     Dosage: 50 MG, UNK
  2. RISEDRONATE SODIUM [Concomitant]
  3. ASPIRIN [Concomitant]
  4. SALMETEROL XINAFOATE [Concomitant]
  5. CELECOXIB [Suspect]
     Indication: RHEUMATOID ARTHRITIS
     Dosage: 400 MG, DAILY
     Route: 048
  6. OPALMON [Concomitant]
  7. CELECOXIB [Suspect]
     Indication: OSTEOARTHRITIS
  8. RIMATIL [Concomitant]
  9. MAGMITT [Concomitant]
  10. RABEPRAZOLE SODIUM [Concomitant]
  11. ALLOPURINOL [Concomitant]
  12. AMLODIPINE [Concomitant]

REACTIONS (1)
  - ATRIOVENTRICULAR BLOCK COMPLETE [None]
